FAERS Safety Report 15989385 (Version 1)
Quarter: 2019Q1

REPORT INFORMATION
  Report Type: Spontaneous
  Country: US (occurrence: US)
  Receive Date: 20190221
  Receipt Date: 20190221
  Transmission Date: 20190418
  Serious: No
  Sender: FDA-Public Use
  Company Number: US-PFIZER INC-2019068524

PATIENT
  Age: 64 Year
  Sex: Female
  Weight: 81.19 kg

DRUGS (1)
  1. GABAPENTIN. [Suspect]
     Active Substance: GABAPENTIN
     Indication: NEURALGIA
     Dosage: 300 MG, 1X/DAY [AT BEDTIME]
     Route: 048

REACTIONS (7)
  - Anxiety [Unknown]
  - Feeling abnormal [Unknown]
  - Malaise [Unknown]
  - Yawning [Unknown]
  - Drug ineffective [Unknown]
  - Agitation [Unknown]
  - Product use in unapproved indication [Unknown]
